FAERS Safety Report 5735286-4 (Version None)
Quarter: 2008Q2

REPORT INFORMATION
  Report Type: 
  Country: None (occurrence: None)
  Receive Date: 20080508
  Receipt Date: 20080508
  Transmission Date: 20081010
  Serious: No
  Sender: FDA-Public Use
  Company Number: None

PATIENT
  Age: 32 Year
  Sex: Male
  Weight: 72.5755 kg

DRUGS (2)
  1. PROHEALTH MOUTHWASH CREST [Suspect]
     Indication: DENTAL PLAQUE
     Dosage: A SIP 2 TO 3 TIMES DAILY DENTAL
     Route: 004
     Dates: start: 20070301, end: 20080507
  2. PROHEALTH MOUTHWASH CREST [Suspect]
     Indication: GINGIVITIS
     Dosage: A SIP 2 TO 3 TIMES DAILY DENTAL
     Route: 004
     Dates: start: 20070301, end: 20080507

REACTIONS (1)
  - TOOTH DISCOLOURATION [None]
